FAERS Safety Report 6982291-6 (Version None)
Quarter: 2010Q3

REPORT INFORMATION
  Report Type: 
  Country: None (occurrence: None)
  Receive Date: 20100914
  Receipt Date: 20091208
  Transmission Date: 20110219
  Serious: No
  Sender: FDA-Public Use
  Company Number: US-PFIZER INC-2009307814

PATIENT
  Sex: Female
  Weight: 68 kg

DRUGS (12)
  1. LYRICA [Suspect]
     Indication: FIBROMYALGIA
     Route: 048
  2. LYRICA [Suspect]
     Indication: FATIGUE
  3. LYRICA [Suspect]
     Indication: IMMUNE SYSTEM DISORDER
  4. LYRICA [Suspect]
     Indication: MYOFASCIAL PAIN SYNDROME
  5. LYRICA [Suspect]
     Indication: LYME DISEASE
  6. LYRICA [Suspect]
     Indication: NEOPLASM MALIGNANT
  7. TRAZODONE HCL [Suspect]
     Indication: FATIGUE
  8. TRAZODONE HCL [Suspect]
     Indication: FIBROMYALGIA
  9. HYDROCODONE [Suspect]
     Indication: FATIGUE
  10. HYDROCODONE [Suspect]
     Indication: FIBROMYALGIA
  11. CYMBALTA [Suspect]
     Indication: FATIGUE
     Route: 048
  12. CYMBALTA [Suspect]
     Indication: FIBROMYALGIA

REACTIONS (1)
  - DRUG INEFFECTIVE [None]
